FAERS Safety Report 6327390-7 (Version None)
Quarter: 2009Q3

REPORT INFORMATION
  Report Type: 
  Country: None (occurrence: None)
  Receive Date: 20090825
  Receipt Date: 20090813
  Transmission Date: 20100115
  Serious: Yes (Hospitalization, Other)
  Sender: FDA-Public Use
  Company Number: US-PFIZER INC-2007105824

PATIENT
  Sex: Female

DRUGS (2)
  1. CHANTIX [Suspect]
     Dates: start: 20070701
  2. PAXIL [Suspect]

REACTIONS (9)
  - BIPOLAR DISORDER [None]
  - BLISTER [None]
  - DELUSIONAL DISORDER, PERSECUTORY TYPE [None]
  - HALLUCINATION [None]
  - INSOMNIA [None]
  - MENTAL DISORDER [None]
  - PSYCHOTIC DISORDER [None]
  - RASH [None]
  - SOMNOLENCE [None]
